FAERS Safety Report 20521251 (Version 3)
Quarter: 2022Q1

REPORT INFORMATION
  Report Type: Spontaneous
  Country: US (occurrence: US)
  Receive Date: 20220226
  Receipt Date: 20220317
  Transmission Date: 20220424
  Serious: Yes (Other)
  Sender: FDA-Public Use
  Company Number: US-UNITED THERAPEUTICS-UNT-2022-004162

PATIENT
  Age: 43 Year
  Sex: Male
  Weight: 71.655 kg

DRUGS (2)
  1. TYVASO [Suspect]
     Active Substance: TREPROSTINIL
     Indication: Pulmonary arterial hypertension
     Dosage: UNK
     Dates: start: 20220209
  2. TYVASO [Suspect]
     Active Substance: TREPROSTINIL
     Dosage: 18-72 ?G, QID
     Dates: start: 202202

REACTIONS (3)
  - Thrombosis [Unknown]
  - Productive cough [Unknown]
  - Abdominal pain [Not Recovered/Not Resolved]

NARRATIVE: CASE EVENT DATE: 20220201
